FAERS Safety Report 6982472-1 (Version None)
Quarter: 2010Q3

REPORT INFORMATION
  Report Type: 
  Country: None (occurrence: None)
  Receive Date: 20100914
  Receipt Date: 20100209
  Transmission Date: 20110219
  Serious: Yes (Other)
  Sender: FDA-Public Use
  Company Number: US-PFIZER INC-2010019951

PATIENT
  Sex: Female
  Weight: 81.633 kg

DRUGS (12)
  1. LYRICA [Suspect]
     Indication: NEUROPATHY PERIPHERAL
     Dosage: 100 MG, 2X/DAY
     Dates: start: 20090101
  2. GABAPENTIN [Suspect]
     Indication: NEUROPATHY PERIPHERAL
     Dosage: 800 MG, 4X/DAY
     Dates: end: 20090101
  3. ATENOLOL [Suspect]
     Indication: HYPERTENSION
     Dates: end: 20090101
  4. LISINOPRIL [Suspect]
     Indication: HYPERTENSION
     Dosage: 10 MG, UNK
  5. NEXIUM [Concomitant]
     Dosage: 40 MG, 1X/DAY
  6. FLONASE [Concomitant]
     Indication: HYPERSENSITIVITY
     Dosage: 50 UG, UNK
  7. ALLEGRA [Concomitant]
     Dosage: 180 MG, 1X/DAY
  8. LEVOTHYROXINE SODIUM [Concomitant]
     Indication: THYROID DISORDER
     Dosage: .075 DAILY
  9. BUMEX [Concomitant]
     Dosage: 2 MG, 2X/DAY
  10. HYDROCODONE [Concomitant]
     Dosage: 3.5 TABLETS OF 500MG DAILY
  11. ESTRADIOL [Concomitant]
     Dosage: 0.5 MG, 1X/DAY
  12. TRAZODONE [Concomitant]
     Dosage: 50 MG, 3X/DAY

REACTIONS (3)
  - ALOPECIA [None]
  - DIPLOPIA [None]
  - VISION BLURRED [None]
